FAERS Safety Report 9897644 (Version 1)
Quarter: 2014Q1

REPORT INFORMATION
  Report Type: Spontaneous
  Country: US (occurrence: US)
  Receive Date: 20140214
  Receipt Date: 20140214
  Transmission Date: 20141002
  Serious: Yes (Death, Other)
  Sender: FDA-Public Use
  Company Number: US-BEH-2014040680

PATIENT
  Age: 38 Year
  Sex: Male

DRUGS (1)
  1. INTRAVENOUS ALBUMIN [Suspect]
     Indication: HEPATOCELLULAR CARCINOMA

REACTIONS (4)
  - Shock haemorrhagic [Fatal]
  - Renal failure acute [Fatal]
  - Acute hepatic failure [Fatal]
  - Drug ineffective for unapproved indication [Fatal]
